FAERS Safety Report 16134078 (Version 1)
Quarter: 2019Q1

REPORT INFORMATION
  Report Type: Spontaneous
  Country: IT (occurrence: IT)
  Receive Date: 20190329
  Receipt Date: 20190329
  Transmission Date: 20190418
  Serious: Yes (Other)
  Sender: FDA-Public Use
  Company Number: IT-ELI_LILLY_AND_COMPANY-IT201903010747

PATIENT
  Age: 73 Year
  Sex: Female

DRUGS (7)
  1. TARGIN [Concomitant]
     Active Substance: NALOXONE HYDROCHLORIDE\OXYCODONE HYDROCHLORIDE
  2. COTAREG [Concomitant]
     Active Substance: HYDROCHLOROTHIAZIDE\VALSARTAN
  3. STILNOX [Concomitant]
     Active Substance: ZOLPIDEM TARTRATE
  4. LEXOTAN [Concomitant]
     Active Substance: BROMAZEPAM
  5. CONTRAMAL [Concomitant]
     Active Substance: TRAMADOL HYDROCHLORIDE
  6. FORSTEO 250UG/ML [Suspect]
     Active Substance: TERIPARATIDE
     Indication: OSTEOPOROSIS
     Dosage: UNK, UNKNOWN
     Route: 065
     Dates: start: 201703
  7. FLEXART PLUS [Concomitant]

REACTIONS (5)
  - Mobility decreased [Unknown]
  - Pain in extremity [Unknown]
  - Musculoskeletal pain [Unknown]
  - Sleep disorder due to a general medical condition [Unknown]
  - Gait inability [Unknown]

NARRATIVE: CASE EVENT DATE: 201807
